FAERS Safety Report 8266452-4 (Version None)
Quarter: 2012Q2

REPORT INFORMATION
  Report Type: 
  Country: None (occurrence: None)
  Receive Date: 20120406
  Receipt Date: 20120329
  Transmission Date: 20120825
  Serious: Yes (Hospitalization, Other)
  Sender: FDA-Public Use
  Company Number: ES-MERCK-1204ESP00004

PATIENT
  Age: 74 Year
  Sex: Male

DRUGS (10)
  1. ERTAPENEM SODIUM [Suspect]
     Indication: KLEBSIELLA INFECTION
     Route: 041
     Dates: start: 20080526
  2. ERTAPENEM SODIUM [Suspect]
     Indication: URINARY TRACT INFECTION
     Route: 041
     Dates: start: 20080526
  3. CEFAZOLIN [Concomitant]
     Indication: ANTIBIOTIC PROPHYLAXIS
     Route: 065
     Dates: start: 20080101, end: 20080101
  4. TIGECYCLINE [Suspect]
     Indication: KLEBSIELLA INFECTION
     Route: 065
     Dates: start: 20080305, end: 20080305
  5. TIGECYCLINE [Suspect]
     Indication: URINARY TRACT INFECTION
     Route: 065
     Dates: start: 20080305, end: 20080305
  6. PRIMAXIN [Suspect]
     Indication: URINARY TRACT INFECTION
     Route: 051
     Dates: start: 20080214, end: 20080312
  7. LEVOFLOXACIN [Concomitant]
     Indication: PYREXIA
     Route: 065
     Dates: start: 20080101, end: 20080214
  8. TIGECYCLINE [Suspect]
     Route: 065
     Dates: start: 20080306, end: 20080312
  9. TIGECYCLINE [Suspect]
     Route: 065
     Dates: start: 20080306, end: 20080312
  10. PRIMAXIN [Suspect]
     Indication: KLEBSIELLA INFECTION
     Route: 051
     Dates: start: 20080214, end: 20080312

REACTIONS (4)
  - PATHOGEN RESISTANCE [None]
  - KIDNEY TRANSPLANT REJECTION [None]
  - URINARY TRACT INFECTION [None]
  - KLEBSIELLA BACTERAEMIA [None]
